FAERS Safety Report 5225800-X (Version None)
Quarter: 2007Q1

REPORT INFORMATION
  Report Type: 
  Country: None (occurrence: None)
  Receive Date: 20070130
  Receipt Date: 20070130
  Transmission Date: 20070707
  Serious: Yes (Hospitalization)
  Sender: FDA-Public Use
  Company Number: None

PATIENT
  Age: 16 Year
  Sex: Male
  Weight: 65.7716 kg

DRUGS (2)
  1. TUSSAL-ER [Suspect]
     Indication: COUGH
     Dosage: 1 TABLET 2XS A DAY PO
     Route: 048
     Dates: start: 20070116, end: 20070121
  2. Y-C OF DM [Suspect]

REACTIONS (8)
  - DIPLOPIA [None]
  - DISORIENTATION [None]
  - DIZZINESS [None]
  - DYSURIA [None]
  - PYREXIA [None]
  - TREMOR [None]
  - URINARY RETENTION [None]
  - VISION BLURRED [None]
